FAERS Safety Report 4945507-3 (Version None)
Quarter: 2006Q1

REPORT INFORMATION
  Report Type: 
  Country: None (occurrence: None)
  Receive Date: 20060316
  Receipt Date: 20050929
  Transmission Date: 20060701
  Serious: Yes (Death, Hospitalization)
  Sender: FDA-Public Use
  Company Number: US-MERCK-0510USA00305

PATIENT
  Age: 60 Year
  Sex: Female
  Weight: 114 kg

DRUGS (2)
  1. VIOXX [Suspect]
     Indication: ARTHRITIS
     Route: 048
     Dates: start: 20000626, end: 20021107
  2. VIOXX [Suspect]
     Indication: ARTHRALGIA
     Route: 048
     Dates: start: 20000626, end: 20021107

REACTIONS (3)
  - DYSPNOEA [None]
  - PNEUMONIA [None]
  - PULMONARY EMBOLISM [None]
